FAERS Safety Report 6150304-X (Version None)
Quarter: 2009Q2

REPORT INFORMATION
  Report Type: 
  Country: None (occurrence: None)
  Receive Date: 20090407
  Receipt Date: 20090327
  Transmission Date: 20091009
  Serious: Yes (Hospitalization)
  Sender: FDA-Public Use
  Company Number: WAES 0712USA07938

PATIENT
  Age: 71 Year
  Sex: Male

DRUGS (13)
  1. CAP VORINOSTAT [Suspect]
     Indication: NON-SMALL CELL LUNG CANCER
     Dosage: 400 MG/DAILY PO ; 400 MG/DAILY PO
     Route: 048
     Dates: start: 20071112, end: 20071125
  2. CAP VORINOSTAT [Suspect]
     Indication: NON-SMALL CELL LUNG CANCER
     Dosage: 400 MG/DAILY PO ; 400 MG/DAILY PO
     Route: 048
     Dates: start: 20071210, end: 20071213
  3. CARBOPLATIN [Suspect]
     Indication: NON-SMALL CELL LUNG CANCER
     Dosage: 600 MG/1X IV ; 600 MG/1X IV
     Route: 042
     Dates: start: 20071116, end: 20071116
  4. CARBOPLATIN [Suspect]
     Indication: NON-SMALL CELL LUNG CANCER
     Dosage: 600 MG/1X IV ; 600 MG/1X IV
     Route: 042
     Dates: start: 20071210, end: 20071210
  5. PACLITAXEL [Suspect]
     Indication: NON-SMALL CELL LUNG CANCER
     Dosage: 344 MG/1X IV ; 344 MG/1X IV
     Route: 042
     Dates: start: 20071116, end: 20071116
  6. PACLITAXEL [Suspect]
     Indication: NON-SMALL CELL LUNG CANCER
     Dosage: 344 MG/1X IV ; 344 MG/1X IV
     Route: 042
     Dates: start: 20071210, end: 20071210
  7. DEXAMETHASONE 4MG TAB [Concomitant]
  8. DEXCHLORPHENIRAMINE MALEATE [Concomitant]
  9. LORAZEPAM [Concomitant]
  10. OMEPRAZOLE [Concomitant]
  11. RANITIDINE [Concomitant]
  12. REPAGLINIDE [Concomitant]
  13. TAMSULOSIN HYDROCHLORIDE [Concomitant]

REACTIONS (9)
  - ABDOMINAL PAIN [None]
  - COLOSTOMY [None]
  - CONSTIPATION [None]
  - DERMATITIS [None]
  - DIVERTICULITIS [None]
  - NECROSIS [None]
  - PROCEDURAL PAIN [None]
  - PROCEDURAL SITE REACTION [None]
  - RECTAL PERFORATION [None]
